FAERS Safety Report 9686680 (Version 3)
Quarter: 2013Q4

REPORT INFORMATION
  Report Type: Spontaneous
  Country: DE (occurrence: DE)
  Receive Date: 20131113
  Receipt Date: 20131202
  Transmission Date: 20140711
  Serious: Yes (Death, Hospitalization, Other)
  Sender: FDA-Public Use
  Company Number: DE-UCBSA-096618

PATIENT
  Age: 80 Year
  Sex: Male
  Weight: 65 kg

DRUGS (16)
  1. KEPPRA [Suspect]
     Indication: GRAND MAL CONVULSION
     Route: 048
     Dates: start: 20130823, end: 20130827
  2. KEPPRA [Suspect]
     Indication: GRAND MAL CONVULSION
     Dosage: 2X250 MG
  3. KEPPRA [Suspect]
     Indication: GRAND MAL CONVULSION
     Dosage: UNKNOWN DOSE
  4. MARCOUMAR [Concomitant]
     Dosage: AS REQUIRED
  5. BISOPROLOL [Concomitant]
     Dosage: 5 ; ONCE IN MORNING AND ONCE IN EVENING
  6. RAMIPRIL [Concomitant]
     Dosage: 2.5; 1/2 IN MORNING
  7. TOREM [Concomitant]
     Dosage: 10; ONCE IN MORNING
  8. AMOXY COMBINATION [Concomitant]
     Indication: INFECTION
     Route: 048
     Dates: start: 20130822, end: 20130826
  9. KLACID [Concomitant]
     Indication: INFECTION
     Route: 048
     Dates: start: 20130822, end: 20130826
  10. GLIMEPIRIDE [Concomitant]
     Dosage: UNKNOWN
  11. SITAGLIPTIN [Concomitant]
     Dosage: UNKNOWN
  12. SPIRONOLACTONE [Concomitant]
     Dosage: UNKNOWN
  13. PANTOZOLE [Concomitant]
  14. ACETYLCYSTEINE [Concomitant]
  15. NACL [Concomitant]
     Dosage: 0.9%, 1000ML
     Route: 042
  16. HEPARIN [Concomitant]
     Dosage: 5000 IE
     Route: 058

REACTIONS (6)
  - Sepsis [Fatal]
  - Pneumonia aspiration [Fatal]
  - Multi-organ failure [Fatal]
  - Partial seizures [Recovered/Resolved]
  - Grand mal convulsion [Unknown]
  - Dysphagia [Unknown]
